FAERS Safety Report 4783002-5 (Version None)
Quarter: 2005Q3

REPORT INFORMATION
  Report Type: 
  Country: None (occurrence: None)
  Receive Date: 20050927
  Receipt Date: 20050916
  Transmission Date: 20060218
  Serious: Yes (Other)
  Sender: FDA-Public Use
  Company Number: EM2005-0467

PATIENT
  Age: 55 Year
  Sex: Female
  Weight: 66.2 kg

DRUGS (2)
  1. PROLEUKIN [Suspect]
     Indication: RENAL CELL CARCINOMA STAGE UNSPECIFIED
     Dosage: 30, SUBCUTAN
     Route: 058
     Dates: start: 20050811
  2. ARANESP [Concomitant]

REACTIONS (3)
  - DERMATITIS BULLOUS [None]
  - GENERALISED OEDEMA [None]
  - PAIN OF SKIN [None]
